FAERS Safety Report 20537288 (Version 1)
Quarter: 2022Q1

REPORT INFORMATION
  Report Type: Spontaneous
  Country: GB (occurrence: GB)
  Receive Date: 20220302
  Receipt Date: 20220302
  Transmission Date: 20220424
  Serious: Yes (Other)
  Sender: FDA-Public Use
  Company Number: GB-MHRA-MED-202202141810080350-12FR8

PATIENT
  Age: 69 Year
  Sex: Male
  Weight: 133 kg

DRUGS (6)
  1. BISOPROLOL [Suspect]
     Active Substance: BISOPROLOL
     Indication: Angina pectoris
     Dosage: 2.5 MILLIGRAM DAILY;
     Route: 065
     Dates: start: 20220105, end: 20220214
  2. RAMIPRIL [Concomitant]
     Active Substance: RAMIPRIL
     Dates: start: 202006
  3. ROSUVASTATIN [Concomitant]
     Active Substance: ROSUVASTATIN
     Indication: Adverse drug reaction
     Dates: start: 202108
  4. AMLODIPINE [Concomitant]
     Active Substance: AMLODIPINE BESYLATE
     Dates: start: 202006
  5. ASPIRIN [Concomitant]
     Active Substance: ASPIRIN
     Dates: start: 202006
  6. CLOPIDOGREL [Concomitant]
     Active Substance: CLOPIDOGREL BISULFATE
     Indication: Adverse drug reaction
     Dates: start: 202107

REACTIONS (7)
  - Sleep talking [Unknown]
  - Sleep disorder [Recovered/Resolved]
  - Sleep apnoea syndrome [Recovered/Resolved]
  - Abnormal dreams [Recovered/Resolved]
  - Hallucination [Recovered/Resolved]
  - Mental impairment [Recovered/Resolved]
  - Somnolence [Recovered/Resolved]

NARRATIVE: CASE EVENT DATE: 20220101
